FAERS Safety Report 25957938 (Version 1)
Quarter: 2025Q4

REPORT INFORMATION
  Report Type: Spontaneous
  Country: US (occurrence: US)
  Receive Date: 20251024
  Receipt Date: 20251024
  Transmission Date: 20260117
  Serious: No
  Sender: PFIZER
  Company Number: US-PFIZER INC-202500209780

PATIENT
  Age: 30 Year
  Sex: Male

DRUGS (2)
  1. MEDROL [Suspect]
     Active Substance: METHYLPREDNISOLONE
     Indication: Eczema
     Dosage: UNK
  2. KEFLEX [Suspect]
     Active Substance: CEPHALEXIN
     Indication: Eczema
     Dosage: UNK

REACTIONS (2)
  - Eczema [Unknown]
  - Disease recurrence [Unknown]
